FAERS Safety Report 24187932 (Version 1)
Quarter: 2024Q3

REPORT INFORMATION
  Report Type: Report from Study
  Country: CO (occurrence: None)
  Receive Date: 20240808
  Receipt Date: 20240808
  Transmission Date: 20241016
  Serious: Yes (Hospitalization, Other)
  Sender: ASTRAZENECA
  Company Number: 2020SE00392

PATIENT
  Age: 29881 Day
  Sex: Male

DRUGS (1)
  1. SYMBICORT [Suspect]
     Active Substance: BUDESONIDE\FORMOTEROL FUMARATE DIHYDRATE
     Indication: Asthma
     Dosage: 320.9 UG, EVERY 12 HOURS
     Route: 055
     Dates: start: 20190425

REACTIONS (2)
  - Pain [Recovering/Resolving]
  - Choking sensation [Recovering/Resolving]

NARRATIVE: CASE EVENT DATE: 20191209
